FAERS Safety Report 5555938-9 (Version None)
Quarter: 2007Q4

REPORT INFORMATION
  Report Type: 
  Country: None (occurrence: None)
  Receive Date: 20071213
  Receipt Date: 20071206
  Transmission Date: 20080405
  Serious: No
  Sender: FDA-Public Use
  Company Number: US-BAXTER-2007BH009130

PATIENT

DRUGS (3)
  1. TRAVASOL 10% [Suspect]
     Indication: NUTRITIONAL SUPPORT
     Dosage: DOSE UNIT:UNKNOWN
     Route: 065
  2. PROSOL 20% SULFITE FREE [Suspect]
     Indication: NUTRITIONAL SUPPORT
     Dosage: DOSE UNIT:UNKNOWN
     Route: 065
  3. STERILE WATER [Suspect]
     Indication: NUTRITIONAL SUPPORT
     Dosage: DOSE UNIT:UNKNOWN
     Route: 065

REACTIONS (4)
  - DEVICE LEAKAGE [None]
  - FUNGAL PERITONITIS [None]
  - PHARMACEUTICAL PRODUCT COMPLAINT [None]
  - THERAPEUTIC PRODUCT CONTAMINATION [None]
